FAERS Safety Report 13967056 (Version 6)
Quarter: 2017Q4

REPORT INFORMATION
  Report Type: Spontaneous
  Country: US (occurrence: US)
  Receive Date: 20170914
  Receipt Date: 20171129
  Transmission Date: 20180320
  Serious: Yes (Hospitalization, Disabling, Other)
  Sender: FDA-Public Use
  Company Number: US-ASTRAZENECA-2017SE91846

PATIENT
  Age: 22648 Day
  Sex: Male
  Weight: 108.9 kg

DRUGS (27)
  1. TOPIRAMATE. [Concomitant]
     Active Substance: TOPIRAMATE
     Indication: TREMOR
     Dates: start: 2010
  2. GABAPENTIN. [Concomitant]
     Active Substance: GABAPENTIN
     Indication: HEADACHE
     Dates: start: 2007
  3. ASPIRIN. [Concomitant]
     Active Substance: ASPIRIN
     Dosage: OVER 10 YEARS AGO
  4. XIGDUO XR [Suspect]
     Active Substance: DAPAGLIFLOZIN PROPANEDIOL\METFORMIN HYDROCHLORIDE
     Indication: TYPE 2 DIABETES MELLITUS
     Route: 048
     Dates: start: 20141216, end: 20151128
  5. TRULICITY PEN INSULIN 20 [Concomitant]
     Indication: BLOOD CHOLESTEROL ABNORMAL
     Dates: start: 2016
  6. NOVOLOG [Concomitant]
     Active Substance: INSULIN ASPART
     Dates: start: 2007
  7. AVANDIA [Concomitant]
     Active Substance: ROSIGLITAZONE MALEATE
     Dosage: OVER 10 YEARS AGO
  8. FARXIGA [Suspect]
     Active Substance: DAPAGLIFLOZIN PROPANEDIOL
     Indication: TYPE 2 DIABETES MELLITUS
     Route: 048
     Dates: start: 20141216, end: 20151128
  9. METFORMIN [Concomitant]
     Active Substance: METFORMIN HYDROCHLORIDE
     Indication: DIABETES MELLITUS
     Dates: start: 20151210
  10. BACLOFEN. [Concomitant]
     Active Substance: BACLOFEN
     Indication: PAIN
     Dates: start: 2007
  11. HYDROCODONE [Concomitant]
     Active Substance: HYDROCODONE
     Indication: MUSCULOSKELETAL PAIN
     Dates: start: 2015
  12. ACTOS [Concomitant]
     Active Substance: PIOGLITAZONE HYDROCHLORIDE
     Dates: start: 20151128
  13. GLUCOTROL [Concomitant]
     Active Substance: GLIPIZIDE
     Dates: start: 20151128
  14. METOPROLOL TARTRATE. [Concomitant]
     Active Substance: METOPROLOL TARTRATE
     Indication: HEADACHE
     Dates: start: 2014
  15. KETOROLAC [Concomitant]
     Active Substance: KETOROLAC\KETOROLAC TROMETHAMINE
     Dates: start: 20150318
  16. KETOROLAC [Concomitant]
     Active Substance: KETOROLAC\KETOROLAC TROMETHAMINE
     Dosage: EVERY 8 HOURES10.0MG UNKNOWN
     Dates: start: 20151121
  17. IBUPROFEN. [Concomitant]
     Active Substance: IBUPROFEN
     Indication: PAIN
     Dates: start: 2000
  18. LEVEMER TOUCH PEN [Concomitant]
  19. TOPIRAMATE. [Concomitant]
     Active Substance: TOPIRAMATE
     Indication: TREMOR
     Dates: start: 20151128
  20. ZOLPIDEM [Concomitant]
     Active Substance: ZOLPIDEM\ZOLPIDEM TARTRATE
     Dates: start: 2015
  21. XIGDUO XR [Suspect]
     Active Substance: DAPAGLIFLOZIN PROPANEDIOL\METFORMIN HYDROCHLORIDE
     Indication: TYPE 2 DIABETES MELLITUS
     Route: 048
     Dates: start: 20151128
  22. JARDIANCE [Concomitant]
     Active Substance: EMPAGLIFLOZIN
  23. ACTOS [Concomitant]
     Active Substance: PIOGLITAZONE HYDROCHLORIDE
     Dosage: OVER 10 YEARS AGO
  24. ATORVASTATIN CALCIUM. [Concomitant]
     Active Substance: ATORVASTATIN CALCIUM
  25. SIMVASTATIN. [Concomitant]
     Active Substance: SIMVASTATIN
     Indication: BLOOD CHOLESTEROL ABNORMAL
     Dates: start: 2002
  26. GLYSET [Concomitant]
     Active Substance: MIGLITOL
     Dosage: OVER 10 YEARS AGO
  27. GLUCOTROL [Concomitant]
     Active Substance: GLIPIZIDE
     Dosage: OVER 10 YEARS AGO

REACTIONS (3)
  - Rotator cuff syndrome [Not Recovered/Not Resolved]
  - Diabetic ketoacidosis [Recovered/Resolved]
  - Depression [Unknown]

NARRATIVE: CASE EVENT DATE: 20151028
